FAERS Safety Report 23687755 (Version 1)
Quarter: 2024Q1

REPORT INFORMATION
  Report Type: Other
  Country: PK (occurrence: None)
  Receive Date: 20240329
  Receipt Date: 20240329
  Transmission Date: 20240410
  Serious: Yes (Death, Hospitalization)
  Sender: FDA-Public Use
  Company Number: PK-ROCHE-3533028

PATIENT
  Age: 64 Year
  Sex: Male

DRUGS (1)
  1. GAZYVA [Suspect]
     Active Substance: OBINUTUZUMAB
     Indication: Follicular lymphoma
     Route: 042
     Dates: start: 20231116, end: 20240118

REACTIONS (2)
  - Multiple organ dysfunction syndrome [Fatal]
  - Pyrexia [Unknown]
